FAERS Safety Report 8351952-9 (Version None)
Quarter: 2012Q2

REPORT INFORMATION
  Report Type: 
  Country: None (occurrence: None)
  Receive Date: 20120510
  Receipt Date: 20120510
  Transmission Date: 20120825
  Serious: Yes (Hospitalization)
  Sender: FDA-Public Use
  Company Number: None

PATIENT
  Sex: Female
  Weight: 60.33 kg

DRUGS (12)
  1. FASLODEX [Suspect]
     Dosage: 500 MG
     Dates: end: 20120409
  2. SENOKOT [Concomitant]
  3. SYNTHROID [Suspect]
  4. MULTI-VITAMIN [Concomitant]
  5. TYLENOL (CAPLET) [Concomitant]
  6. ASCORBIC ACID [Concomitant]
  7. COLACE [Concomitant]
  8. ZOFRAN [Concomitant]
  9. COREG [Concomitant]
  10. CALCIUM D [Concomitant]
  11. CLARITIN [Concomitant]
  12. OXYCODONE HCL [Concomitant]

REACTIONS (2)
  - HYDRONEPHROSIS [None]
  - PELVIC MASS [None]
